FAERS Safety Report 18579400 (Version 1)
Quarter: 2020Q4

REPORT INFORMATION
  Report Type: Other
  Country: CA (occurrence: CA)
  Receive Date: 20201204
  Receipt Date: 20201204
  Transmission Date: 20210114
  Serious: Yes (Hospitalization)
  Sender: FDA-Public Use
  Company Number: CA-APOTEX-2020AP022936

PATIENT
  Age: 74 Year
  Sex: Male

DRUGS (1)
  1. ERLOTINIB [Suspect]
     Active Substance: ERLOTINIB
     Indication: PRODUCT USED FOR UNKNOWN INDICATION
     Dosage: 150 MILLIGRAM, QD
     Route: 048

REACTIONS (11)
  - Blood thyroid stimulating hormone increased [Unknown]
  - Vital functions abnormal [Unknown]
  - Hypotension [Unknown]
  - Body temperature increased [Unknown]
  - Decreased appetite [Unknown]
  - Feeling cold [Unknown]
  - Thyroxine free decreased [Unknown]
  - Tri-iodothyronine free decreased [Unknown]
  - Asthenia [Unknown]
  - Diarrhoea [Unknown]
  - Fatigue [Unknown]
